FAERS Safety Report 4940454-5 (Version None)
Quarter: 2006Q1

REPORT INFORMATION
  Report Type: 
  Country: None (occurrence: None)
  Receive Date: 20060131
  Receipt Date: 20051111
  Transmission Date: 20060701
  Serious: No
  Sender: FDA-Public Use
  Company Number: 200519265US

PATIENT
  Sex: Female

DRUGS (1)
  1. KETEK [Suspect]
     Indication: EAR DISORDER
     Dosage: 800 MG QD PO
     Route: 048

REACTIONS (2)
  - VISION BLURRED [None]
  - VISUAL ACUITY REDUCED [None]
